FAERS Safety Report 23371375 (Version 11)
Quarter: 2025Q3

REPORT INFORMATION
  Report Type: Report from Study
  Country: US (occurrence: US)
  Receive Date: 20240105
  Receipt Date: 20250910
  Transmission Date: 20251021
  Serious: Yes (Other)
  Sender: TAKEDA
  Company Number: US-TAKEDA-2024TUS001439

PATIENT
  Age: 42 Year
  Sex: Male

DRUGS (6)
  1. RECOMBINATE [Suspect]
     Active Substance: ANTIHEMOPHILIC FACTOR, HUMAN RECOMBINANT
     Indication: Haemorrhage
  2. RECOMBINATE [Suspect]
     Active Substance: ANTIHEMOPHILIC FACTOR, HUMAN RECOMBINANT
  3. RECOMBINATE [Suspect]
     Active Substance: ANTIHEMOPHILIC FACTOR, HUMAN RECOMBINANT
  4. RECOMBINATE [Suspect]
     Active Substance: ANTIHEMOPHILIC FACTOR, HUMAN RECOMBINANT
  5. RECOMBINATE [Suspect]
     Active Substance: ANTIHEMOPHILIC FACTOR, HUMAN RECOMBINANT
  6. RECOMBINATE [Suspect]
     Active Substance: ANTIHEMOPHILIC FACTOR, HUMAN RECOMBINANT

REACTIONS (13)
  - Haemarthrosis [Unknown]
  - Arthritis [Unknown]
  - Haemorrhage [Recovering/Resolving]
  - Traumatic haemorrhage [Unknown]
  - Craniofacial fracture [Unknown]
  - Muscle haemorrhage [Not Recovered/Not Resolved]
  - Fall [Unknown]
  - Concussion [Unknown]
  - Polyp [Unknown]
  - Procedural pain [Unknown]
  - Post procedural swelling [Unknown]
  - Tenderness [Not Recovered/Not Resolved]
  - Infection [Unknown]

NARRATIVE: CASE EVENT DATE: 20231215
